FAERS Safety Report 9628255 (Version 1)
Quarter: 2013Q4

REPORT INFORMATION
  Report Type: Spontaneous
  Country: US (occurrence: US)
  Receive Date: 20131017
  Receipt Date: 20131017
  Transmission Date: 20140711
  Serious: No
  Sender: FDA-Public Use
  Company Number: US-009507513-1310USA005757

PATIENT
  Age: 55 Year
  Sex: Female

DRUGS (2)
  1. AZASITE [Suspect]
     Indication: OCULAR ROSACEA
     Dosage: UNK
     Route: 047
     Dates: start: 201308
  2. DOXYCYCLINE [Concomitant]

REACTIONS (1)
  - Pruritus [Recovered/Resolved]
